FAERS Safety Report 16138810 (Version 1)
Quarter: 2019Q1

REPORT INFORMATION
  Report Type: Spontaneous
  Country: DE (occurrence: DE)
  Receive Date: 20190330
  Receipt Date: 20190330
  Transmission Date: 20190418
  Serious: Yes (Other)
  Sender: FDA-Public Use
  Company Number: PHHY2019DE071981

PATIENT
  Age: 22 Year
  Sex: Female

DRUGS (1)
  1. INTERFERON BETA-1B [Suspect]
     Active Substance: INTERFERON BETA-1B
     Indication: MULTIPLE SCLEROSIS
     Dosage: 250 UG, QOD
     Route: 058
     Dates: start: 20170208, end: 20190110

REACTIONS (4)
  - Influenza like illness [Recovering/Resolving]
  - Multiple sclerosis [Unknown]
  - Injection site reaction [Recovering/Resolving]
  - Multiple sclerosis relapse [Unknown]
